FAERS Safety Report 5139074-1 (Version None)
Quarter: 2006Q4

REPORT INFORMATION
  Report Type: 
  Country: None (occurrence: None)
  Receive Date: 20061030
  Receipt Date: 20060616
  Transmission Date: 20070319
  Serious: No
  Sender: FDA-Public Use
  Company Number: US-GLAXOSMITHKLINE-A0609330A

PATIENT
  Sex: Male

DRUGS (1)
  1. ADVAIR HFA [Suspect]
     Dosage: 2PUFF TWICE PER DAY
     Route: 055

REACTIONS (2)
  - DIZZINESS [None]
  - PRESCRIBED OVERDOSE [None]
